FAERS Safety Report 13446901 (Version 3)
Quarter: 2017Q2

REPORT INFORMATION
  Report Type: Spontaneous
  Country: US (occurrence: US)
  Receive Date: 20170417
  Receipt Date: 20170605
  Transmission Date: 20170830
  Serious: Yes (Hospitalization)
  Sender: FDA-Public Use
  Company Number: US-PFIZER INC-2017159684

PATIENT
  Age: 65 Year
  Sex: Female

DRUGS (1)
  1. ADVIL [Suspect]
     Active Substance: IBUPROFEN
     Dosage: 800 MG, DAILY

REACTIONS (4)
  - Dysgeusia [Recovered/Resolved]
  - Product physical issue [Recovered/Resolved]
  - Product taste abnormal [Recovered/Resolved]
  - Poor quality drug administered [Recovered/Resolved]
